FAERS Safety Report 14215802 (Version 1)
Quarter: 2017Q4

REPORT INFORMATION
  Report Type: Spontaneous
  Country: US (occurrence: US)
  Receive Date: 20171122
  Receipt Date: 20171122
  Transmission Date: 20180321
  Serious: No
  Sender: FDA-Public Use
  Company Number: US-PFIZER INC-2017499483

PATIENT
  Age: 56 Year
  Sex: Female

DRUGS (1)
  1. METHOTREXATE SODIUM. [Suspect]
     Active Substance: METHOTREXATE SODIUM
     Dosage: UNK

REACTIONS (6)
  - Arthralgia [Unknown]
  - Peripheral swelling [Unknown]
  - Pain in extremity [Unknown]
  - Myalgia [Unknown]
  - Liver function test increased [Unknown]
  - Muscle swelling [Unknown]
